FAERS Safety Report 7927484-6 (Version None)
Quarter: 2011Q4

REPORT INFORMATION
  Report Type: 
  Country: None (occurrence: None)
  Receive Date: 20111118
  Receipt Date: 20111116
  Transmission Date: 20120403
  Serious: Yes (Hospitalization)
  Sender: FDA-Public Use
  Company Number: NL-PFIZER INC-2011281331

PATIENT
  Age: 51 Year
  Sex: Female
  Weight: 71 kg

DRUGS (8)
  1. LEUPROLIDE ACETATE [Concomitant]
     Dosage: 1 DF, EVERY 3 MONTHS
     Dates: start: 20110829
  2. TRAMADOL [Concomitant]
     Dosage: 50 MG, 2X/DAY
     Dates: start: 20111026
  3. OMEPRAZOLE [Concomitant]
     Dosage: 40 MG, 1X/DAY
     Dates: start: 20111027, end: 20111108
  4. IMODIUM [Concomitant]
     Dosage: 2 MG, AS NEEDED
     Dates: start: 20110801
  5. DUSPATAL DUPHAR [Concomitant]
     Dosage: 200 MG, 2X/DAY
     Dates: start: 20111020
  6. SYSTEN [Concomitant]
     Dosage: 1 BAND-AID, WEEKLY
     Dates: start: 20110906
  7. EFFEXOR XR [Suspect]
     Indication: PANIC DISORDER
     Dosage: 75 MG, 2X/DAY
     Dates: start: 20111001, end: 20111106
  8. DICLOFENAC [Concomitant]
     Dosage: 50 MG, 2X/DAY
     Dates: start: 20111025

REACTIONS (2)
  - ORTHOSTATIC HYPOTENSION [None]
  - ABDOMINAL PAIN [None]
